FAERS Safety Report 9281867 (Version 1)
Quarter: 2013Q2

REPORT INFORMATION
  Report Type: Report from Study
  Country: BR (occurrence: BR)
  Receive Date: 20130510
  Receipt Date: 20130510
  Transmission Date: 20140414
  Serious: Yes (Other)
  Sender: FDA-Public Use
  Company Number: BR-ROCHE-1222631

PATIENT
  Sex: Female
  Weight: 85 kg

DRUGS (6)
  1. ACTEMRA [Suspect]
     Indication: RHEUMATOID ARTHRITIS
     Route: 042
     Dates: start: 20120530, end: 20130201
  2. CAPTOPRIL [Concomitant]
     Indication: HYPERTENSION
  3. NATRILIX [Concomitant]
     Indication: HYPERTENSION
  4. EUTHYROX [Concomitant]
  5. ARTRODAR [Concomitant]
  6. PREDNISONE [Concomitant]

REACTIONS (6)
  - Abasia [Unknown]
  - Drug ineffective [Unknown]
  - Joint swelling [Unknown]
  - Local swelling [Unknown]
  - Joint swelling [Unknown]
  - Joint swelling [Unknown]
